FAERS Safety Report 8766332 (Version 1)
Quarter: 2012Q4

REPORT INFORMATION
  Report Type: 
  Country: ZA (occurrence: ZA)
  Receive Date: 20120904
  Receipt Date: 20120904
  Transmission Date: 20130627
  Serious: Yes (Other)
  Sender: FDA-Public Use
  Company Number: ZA-ROCHE-1113422

PATIENT
  Sex: Female
  Weight: 42 kg

DRUGS (3)
  1. XELODA [Suspect]
     Indication: COLON CANCER
     Route: 065
     Dates: start: 20120413
  2. AMLODAC [Concomitant]
     Indication: HYPERTENSION
     Route: 065
  3. ROCALTROL [Concomitant]
     Indication: RENAL OSTEODYSTROPHY
     Route: 065

REACTIONS (1)
  - Stevens-Johnson syndrome [Recovered/Resolved]
